FAERS Safety Report 11651668 (Version 2)
Quarter: 2015Q4

REPORT INFORMATION
  Report Type: Report from Study
  Country: US (occurrence: US)
  Receive Date: 20151022
  Receipt Date: 20151027
  Transmission Date: 20160304
  Serious: No
  Sender: FDA-Public Use
  Company Number: US-AMGEN-USASL2015109945

PATIENT
  Age: 62 Year
  Sex: Female

DRUGS (1)
  1. ENBREL [Suspect]
     Active Substance: ETANERCEPT
     Indication: RHEUMATOID ARTHRITIS
     Dosage: 50 MG, QWK
     Route: 065
     Dates: start: 2012

REACTIONS (4)
  - Peripheral swelling [Recovered/Resolved]
  - Periarthritis [Recovered/Resolved]
  - Nerve injury [Recovered/Resolved]
  - Fibromyalgia [Recovered/Resolved]
